FAERS Safety Report 9947907 (Version 2)
Quarter: 2014Q1

REPORT INFORMATION
  Report Type: Report from Study
  Country: US (occurrence: US)
  Receive Date: 20140303
  Receipt Date: 20140303
  Transmission Date: 20141002
  Serious: Yes (Other)
  Sender: FDA-Public Use
  Company Number: US-ABBVIE-12P-163-0973573-00

PATIENT
  Age: 59 Year
  Sex: Male
  Weight: 127.12 kg

DRUGS (15)
  1. HUMIRA [Suspect]
     Indication: ARTERIOSCLEROSIS
     Dates: start: 20100421
  2. HYDROCHLOROTHIAZIDE [Concomitant]
     Indication: HYPERTENSION
  3. LISINOPRIL [Concomitant]
     Indication: HYPERTENSION
  4. SIMVASTATIN [Concomitant]
     Indication: BLOOD CHOLESTEROL INCREASED
  5. ASA [Concomitant]
     Indication: PRODUCT USED FOR UNKNOWN INDICATION
  6. VITAMIN C [Concomitant]
     Indication: PRODUCT USED FOR UNKNOWN INDICATION
  7. FISH OIL [Concomitant]
     Indication: PRODUCT USED FOR UNKNOWN INDICATION
  8. ALPHAGAN [Concomitant]
     Indication: GLAUCOMA
     Route: 047
  9. ACYCLOVIR [Concomitant]
     Indication: HERPES OPHTHALMIC
  10. LEXAPRO [Concomitant]
     Indication: DEPRESSION
  11. MULTIVITAMIN [Concomitant]
     Indication: PRODUCT USED FOR UNKNOWN INDICATION
     Dosage: DAILY
  12. CELEBREX [Concomitant]
     Indication: EYE INFLAMMATION
     Dates: start: 2011
  13. METOPROLOL [Concomitant]
     Indication: PRODUCT USED FOR UNKNOWN INDICATION
  14. METOPROLOL [Concomitant]
     Dates: start: 201208
  15. METFORMIN [Concomitant]
     Indication: DIABETES MELLITUS

REACTIONS (4)
  - Chronic lymphocytic leukaemia [Unknown]
  - Eye inflammation [Unknown]
  - Blood pressure fluctuation [Unknown]
  - Off label use [Unknown]
